FAERS Safety Report 9159857 (Version 13)
Quarter: 2015Q3

REPORT INFORMATION
  Report Type: Report from Study
  Country: US (occurrence: US)
  Receive Date: 20130313
  Receipt Date: 20150908
  Transmission Date: 20151125
  Serious: Yes (Hospitalization, Other)
  Sender: FDA-Public Use
  Company Number: US-SANOFI-AVENTIS-2013SA001479

PATIENT
  Age: 52 Year
  Sex: Female
  Weight: 131.08 kg

DRUGS (21)
  1. AUBAGIO [Suspect]
     Active Substance: TERIFLUNOMIDE
     Indication: MULTIPLE SCLEROSIS
     Route: 048
     Dates: start: 20121203
  2. SERTRALINE [Concomitant]
     Active Substance: SERTRALINE HYDROCHLORIDE
     Indication: DEPRESSION
     Dates: start: 2000
  3. PANTHENOL/RETINOL/THIAMINE HYDROCHLORIDE/ASCORBIC ACID/ERGOCALCIFEROL/FOLIC ACID/RIBOFLAVIN/NICOTINA [Concomitant]
  4. TYSABRI [Concomitant]
     Active Substance: NATALIZUMAB
     Dosage: FOR 2 YEARS.
  5. GABAPENTIN. [Concomitant]
     Active Substance: GABAPENTIN
     Indication: NEUROPATHY PERIPHERAL
     Dosage: FIVE TABLETS DAILY
     Route: 048
     Dates: start: 2005
  6. LACTOBACILLUS ACIDOPHILUS [Concomitant]
     Active Substance: LACTOBACILLUS ACIDOPHILUS
  7. VALIUM [Concomitant]
     Active Substance: DIAZEPAM
     Indication: MUSCLE SPASTICITY
     Dates: start: 2005
  8. DEXAMETHASONE. [Concomitant]
     Active Substance: DEXAMETHASONE
  9. HORMONES AND RELATED AGENTS [Concomitant]
     Active Substance: UNSPECIFIED INGREDIENT
  10. AUBAGIO [Suspect]
     Active Substance: TERIFLUNOMIDE
     Indication: MULTIPLE SCLEROSIS
     Route: 048
  11. HYDROCHLOROTHIAZIDE. [Concomitant]
     Active Substance: HYDROCHLOROTHIAZIDE
  12. ATORVASTATIN [Concomitant]
     Active Substance: ATORVASTATIN
     Indication: BLOOD CHOLESTEROL INCREASED
     Dates: start: 2010
  13. AUBAGIO [Suspect]
     Active Substance: TERIFLUNOMIDE
     Indication: MULTIPLE SCLEROSIS
     Route: 048
     Dates: start: 20130615
  14. LEVOTHYROXINE. [Concomitant]
     Active Substance: LEVOTHYROXINE
  15. TYLENOL WITH CODEINE [Concomitant]
     Active Substance: ACETAMINOPHEN\CODEINE PHOSPHATE
     Indication: PAIN IN EXTREMITY
     Dates: start: 2000
  16. DIAZEPAM. [Concomitant]
     Active Substance: DIAZEPAM
     Indication: MUSCLE SPASTICITY
  17. ZOLPIDEM [Concomitant]
     Active Substance: ZOLPIDEM\ZOLPIDEM TARTRATE
     Indication: SLEEP DISORDER
  18. FISH OIL [Concomitant]
     Active Substance: FISH OIL
  19. VITAMINE B [Concomitant]
  20. VITAMIN D [Concomitant]
     Active Substance: CHOLECALCIFEROL
  21. DEXILANT [Concomitant]
     Active Substance: DEXLANSOPRAZOLE
     Indication: GASTROOESOPHAGEAL REFLUX DISEASE
     Dates: start: 2012

REACTIONS (29)
  - Pancreatic carcinoma [Unknown]
  - Optic neuritis [Not Recovered/Not Resolved]
  - Cognitive disorder [Unknown]
  - Paraesthesia [Recovering/Resolving]
  - Sleep disorder [Unknown]
  - Bronchitis [Recovering/Resolving]
  - Thrombosis [Unknown]
  - Herpes zoster [Unknown]
  - Headache [Unknown]
  - Foot fracture [Unknown]
  - Sleep apnoea syndrome [Unknown]
  - Ulcer haemorrhage [Unknown]
  - Paralysis [Unknown]
  - Nausea [Unknown]
  - Oesophageal ulcer [Unknown]
  - Multiple sclerosis relapse [Recovered/Resolved]
  - Oropharyngeal pain [Unknown]
  - Muscle spasticity [Unknown]
  - Urinary tract infection [Unknown]
  - Condition aggravated [Unknown]
  - Unevaluable event [Unknown]
  - Diarrhoea [Unknown]
  - Rash erythematous [Unknown]
  - Diabetes mellitus [Unknown]
  - Fatigue [Unknown]
  - Stress [Unknown]
  - Pain in extremity [Recovered/Resolved]
  - Alopecia [Unknown]
  - Pneumonia [Unknown]

NARRATIVE: CASE EVENT DATE: 201212
